FAERS Safety Report 7900628-8 (Version None)
Quarter: 2011Q4

REPORT INFORMATION
  Report Type: 
  Country: None (occurrence: None)
  Receive Date: 20111104
  Receipt Date: 20111026
  Transmission Date: 20120403
  Serious: Yes (Other)
  Sender: FDA-Public Use
  Company Number: DSJ-2011-15273

PATIENT
  Age: 77 Year
  Sex: Female

DRUGS (4)
  1. ALENDRONATE (ALENDRONATE SODIUM) (ALENDRONATE SODIUM) [Concomitant]
  2. BENICAR HCT [Suspect]
     Indication: HYPERTENSION
     Dosage: 20/12.5 MG (1 IN 1 D), PER ORAL, 40/12.5 MG (1 IN 1 D), PER ORAL
     Route: 048
     Dates: start: 20110801
  3. BENICAR HCT [Suspect]
     Indication: HYPERTENSION
     Dosage: 20/12.5 MG (1 IN 1 D), PER ORAL, 40/12.5 MG (1 IN 1 D), PER ORAL
     Route: 048
     Dates: start: 20090101, end: 20110801
  4. SIMVASTATIN [Concomitant]

REACTIONS (2)
  - CATARACT OPERATION [None]
  - DRUG INEFFECTIVE [None]
